FAERS Safety Report 5698553-9 (Version None)
Quarter: 2008Q2

REPORT INFORMATION
  Report Type: 
  Country: None (occurrence: None)
  Receive Date: 20080408
  Receipt Date: 20060907
  Transmission Date: 20081010
  Serious: No
  Sender: FDA-Public Use
  Company Number: US-BAYER-US-2006-026281

PATIENT
  Age: 73 Year
  Sex: Female
  Weight: 52 kg

DRUGS (4)
  1. MENOSTAR [Suspect]
     Indication: OSTEOPOROSIS
     Route: 062
     Dates: end: 20060801
  2. MENOSTAR [Suspect]
     Route: 062
     Dates: start: 20060815
  3. ATENOLOL [Concomitant]
  4. VALIUM [Concomitant]

REACTIONS (2)
  - METRORRHAGIA [None]
  - VAGINAL HAEMORRHAGE [None]
